FAERS Safety Report 12942704 (Version 2)
Quarter: 2016Q4

REPORT INFORMATION
  Report Type: Report from Study
  Country: JP (occurrence: JP)
  Receive Date: 20161114
  Receipt Date: 20161118
  Transmission Date: 20170207
  Serious: Yes (Hospitalization)
  Sender: FDA-Public Use
  Company Number: JP-CONCORDIA PHARMACEUTICALS INC.-E2B_00007906

PATIENT
  Age: 72 Year
  Sex: Male

DRUGS (10)
  1. ZONISAMIDE. [Suspect]
     Active Substance: ZONISAMIDE
     Indication: DEMENTIA WITH LEWY BODIES
     Route: 048
     Dates: start: 20161019, end: 20161101
  2. ZONISAMIDE. [Suspect]
     Active Substance: ZONISAMIDE
     Indication: PARKINSONISM
     Dosage: 25 MG, 50 MG, OR PLACEBO
     Route: 048
     Dates: start: 20160727, end: 20161018
  3. MENESIT [Concomitant]
     Active Substance: CARBIDOPA\LEVODOPA
  4. JANUVIA [Concomitant]
     Active Substance: SITAGLIPTIN PHOSPHATE
  5. TSUMURA [Concomitant]
  6. HYALONSAN [Concomitant]
  7. GLYCERIN. [Concomitant]
     Active Substance: GLYCERIN
  8. XALATAN [Concomitant]
     Active Substance: LATANOPROST
  9. LAXOBERON [Concomitant]
     Active Substance: SODIUM PICOSULFATE
  10. PRAVASTATIN SODIUM. [Concomitant]
     Active Substance: PRAVASTATIN SODIUM

REACTIONS (2)
  - Tooth impacted [Not Recovered/Not Resolved]
  - Pneumonia aspiration [Not Recovered/Not Resolved]

NARRATIVE: CASE EVENT DATE: 20160823
